FAERS Safety Report 9348509 (Version 1)
Quarter: 2013Q2

REPORT INFORMATION
  Report Type: Spontaneous
  Country: US (occurrence: US)
  Receive Date: 20130614
  Receipt Date: 20130614
  Transmission Date: 20140414
  Serious: No
  Sender: FDA-Public Use
  Company Number: US-TEVA-411824USA

PATIENT
  Age: 73 Year
  Sex: Female
  Weight: 55.84 kg

DRUGS (7)
  1. PROAIR HFA [Suspect]
     Indication: BRONCHOSPASM
     Dates: start: 20130228
  2. HYDROCHLOROTHIAZIDE [Concomitant]
     Indication: HYPERTENSION
     Dosage: DAILY
     Route: 048
  3. PREMARIN [Concomitant]
     Indication: HORMONE THERAPY
     Dosage: DAILY
     Route: 048
  4. KCL [Concomitant]
     Indication: ELECTROLYTE SUBSTITUTION THERAPY
     Dosage: 10%  1.5 TSP DAILY
     Route: 048
  5. MULTIVITAMIN [Concomitant]
     Indication: VITAMIN SUPPLEMENTATION
  6. CALCIUM [Concomitant]
     Indication: MINERAL SUPPLEMENTATION
     Route: 048
  7. MAGNESIUM [Concomitant]
     Indication: MINERAL SUPPLEMENTATION
     Route: 048

REACTIONS (1)
  - Productive cough [Unknown]
